FAERS Safety Report 5270300-4 (Version None)
Quarter: 2007Q1

REPORT INFORMATION
  Report Type: 
  Country: None (occurrence: None)
  Receive Date: 20070314
  Receipt Date: 20070228
  Transmission Date: 20070707
  Serious: Yes (Other)
  Sender: FDA-Public Use
  Company Number: 2007JP000408

PATIENT
  Age: 63 Year
  Sex: Female
  Weight: 47.8 kg

DRUGS (3)
  1. PROGRAF [Suspect]
     Indication: STEM CELL TRANSPLANT
     Dosage: 2 MG, BID, ORAL
     Route: 048
     Dates: start: 20040615
  2. BAKTAR (SULFAMETHOXAZOLE, TRIMETHOPRIM) [Concomitant]
  3. MEROPEN (MEROPENEM) INJECTION [Concomitant]

REACTIONS (4)
  - BLISTER [None]
  - GAMMA-GLUTAMYLTRANSFERASE INCREASED [None]
  - HEPATIC FUNCTION ABNORMAL [None]
  - PEMPHIGOID [None]
